APPROVED DRUG PRODUCT: CHLORZOXAZONE
Active Ingredient: CHLORZOXAZONE
Strength: 500MG
Dosage Form/Route: TABLET;ORAL
Application: A081299 | Product #001
Applicant: OHM LABORATORIES INC.
Approved: Dec 29, 1993 | RLD: No | RS: No | Type: DISCN